FAERS Safety Report 6496642-2 (Version None)
Quarter: 2009Q4

REPORT INFORMATION
  Report Type: 
  Country: None (occurrence: None)
  Receive Date: 20091210
  Receipt Date: 20091120
  Transmission Date: 20100525
  Serious: Yes (Life-Threatening, Hospitalization)
  Sender: FDA-Public Use
  Company Number: 000518

PATIENT
  Sex: Male

DRUGS (5)
  1. PROSTAVASIN /00501501/ (PROSTAVASIN) [Suspect]
     Indication: PERIPHERAL ARTERIAL OCCLUSIVE DISEASE
     Dosage: (INTRA-ARTERIAL)
     Route: 013
  2. DEPOT-H-INSULIN [Concomitant]
  3. METOPROLOL TARTRATE [Concomitant]
  4. NIFEDIPINE [Concomitant]
  5. CALCIPARINE [Concomitant]

REACTIONS (7)
  - ALANINE AMINOTRANSFERASE INCREASED [None]
  - ANAEMIA [None]
  - ASPARTATE AMINOTRANSFERASE INCREASED [None]
  - BLOOD CREATINE PHOSPHOKINASE INCREASED [None]
  - BLOOD LACTATE DEHYDROGENASE INCREASED [None]
  - LEUKOCYTOSIS [None]
  - PULMONARY OEDEMA [None]
